FAERS Safety Report 14801500 (Version 11)
Quarter: 2019Q4

REPORT INFORMATION
  Report Type: Report from Study
  Country: None (occurrence: DE)
  Receive Date: 20180424
  Receipt Date: 20191120
  Transmission Date: 20200122
  Serious: Yes (Life-Threatening, Hospitalization, Other)
  Sender: FDA-Public Use
  Company Number: DE-ABBVIE-18P-062-2327327-00

PATIENT
  Age: 40 Year
  Sex: Female
  Weight: 96 kg

DRUGS (7)
  1. VENCLYXTO [Suspect]
     Active Substance: VENETOCLAX
     Route: 048
     Dates: start: 20180330, end: 20180422
  2. VENCLYXTO [Suspect]
     Active Substance: VENETOCLAX
     Route: 048
     Dates: start: 20180423, end: 20180429
  3. VENCLYXTO [Suspect]
     Active Substance: VENETOCLAX
     Route: 048
     Dates: start: 20180515, end: 20180522
  4. ALLOPURINOL. [Concomitant]
     Active Substance: ALLOPURINOL
     Indication: BLOOD URIC ACID INCREASED
     Dates: start: 20180327, end: 201804
  5. VENCLYXTO [Suspect]
     Active Substance: VENETOCLAX
     Route: 048
     Dates: start: 20180430, end: 20180502
  6. VENCLYXTO [Suspect]
     Active Substance: VENETOCLAX
     Route: 048
     Dates: start: 20180503, end: 20180514
  7. VENCLYXTO [Suspect]
     Active Substance: VENETOCLAX
     Indication: CHRONIC LYMPHOCYTIC LEUKAEMIA
     Route: 048
     Dates: start: 20180327, end: 20180329

REACTIONS (7)
  - Hypercalcaemia [Recovered/Resolved]
  - Blood calcium decreased [Unknown]
  - White blood cell disorder [Recovered/Resolved]
  - Neoplasm progression [Unknown]
  - Lymphadenopathy [Unknown]
  - Neoplasm progression [Recovered/Resolved]
  - Neutropenia [Not Recovered/Not Resolved]

NARRATIVE: CASE EVENT DATE: 20180409
